FAERS Safety Report 4704683-8 (Version None)
Quarter: 2005Q2

REPORT INFORMATION
  Report Type: 
  Country: None (occurrence: None)
  Receive Date: 20050629
  Receipt Date: 20050616
  Transmission Date: 20051028
  Serious: Yes (Hospitalization)
  Sender: FDA-Public Use
  Company Number: CIP05001470

PATIENT
  Age: 74 Year
  Sex: Female
  Weight: 49 kg

DRUGS (7)
  1. RISEDRONATE SODIUM [Suspect]
     Indication: OSTEOPOROSIS
     Dosage: 2.5 MG DAILY, ORAL
     Route: 048
     Dates: start: 20030809, end: 20030920
  2. PREDNISOLONE [Concomitant]
  3. FAMOTIDINE [Concomitant]
  4. CALCIUM LACTATE (CALCIUM LACTATE) [Concomitant]
  5. UNIPHYL [Concomitant]
  6. FLUTIDE (FLUTICASONE PROPIONATE) [Concomitant]
  7. SINGULAIR [Concomitant]

REACTIONS (3)
  - ABDOMINAL PAIN [None]
  - ILEUS [None]
  - VOMITING [None]
